FAERS Safety Report 10176513 (Version 1)
Quarter: 2014Q2

REPORT INFORMATION
  Report Type: Spontaneous
  Country: IL (occurrence: IL)
  Receive Date: 20140516
  Receipt Date: 20140516
  Transmission Date: 20141212
  Serious: Yes (Other)
  Sender: FDA-Public Use
  Company Number: IL-PERRIGO-14IL005031

PATIENT
  Age: 42 Year
  Sex: Male

DRUGS (1)
  1. IMIQUIMOD 5% 149-72-33636 [Suspect]
     Indication: PAPILLOMA
     Dosage: ONE APPLICATION, 3 TIMES A WEEK
     Route: 061

REACTIONS (7)
  - Drug eruption [Unknown]
  - Application site vesicles [Unknown]
  - Wound [Unknown]
  - Application site erythema [Unknown]
  - Application site pain [Unknown]
  - Application site swelling [Unknown]
  - Anogenital warts [None]
